FAERS Safety Report 9852883 (Version 3)
Quarter: 2014Q1

REPORT INFORMATION
  Report Type: Spontaneous
  Country: JP (occurrence: JP)
  Receive Date: 20140129
  Receipt Date: 20140131
  Transmission Date: 20141002
  Serious: No
  Sender: FDA-Public Use
  Company Number: JP-PFIZER INC-2013362795

PATIENT
  Age: 65 Year
  Sex: Female

DRUGS (2)
  1. NORVASC OD [Suspect]
     Dosage: 5 MG, DAILY
     Route: 048
  2. BAYASPIRIN [Concomitant]

REACTIONS (1)
  - Blood urine [Recovered/Resolved]
